FAERS Safety Report 24226076 (Version 1)
Quarter: 2024Q3

REPORT INFORMATION
  Report Type: Spontaneous
  Country: US (occurrence: US)
  Receive Date: 20240820
  Receipt Date: 20240820
  Transmission Date: 20241016
  Serious: No
  Sender: ACCORD
  Company Number: US-Accord-429919

PATIENT
  Sex: Female

DRUGS (1)
  1. ANASTROZOLE [Suspect]
     Active Substance: ANASTROZOLE
     Indication: Product used for unknown indication
     Dosage: ONE TABLET PER DAY; START DATE: MAY

REACTIONS (3)
  - Fatigue [Unknown]
  - Drug ineffective [Unknown]
  - Adverse drug reaction [Unknown]
